FAERS Safety Report 7759256-X (Version None)
Quarter: 2011Q3

REPORT INFORMATION
  Report Type: 
  Country: None (occurrence: None)
  Receive Date: 20110919
  Receipt Date: 20110907
  Transmission Date: 20111222
  Serious: Yes (Other)
  Sender: FDA-Public Use
  Company Number: US-ALLERGAN-1108982US

PATIENT
  Age: 71 Year
  Sex: Male

DRUGS (1)
  1. OZURDEX [Suspect]
     Indication: PRODUCT USED FOR UNKNOWN INDICATION
     Dosage: 0.7 MG, SINGLE
     Route: 031
     Dates: start: 20101123, end: 20101123

REACTIONS (4)
  - CORNEAL OEDEMA [None]
  - DEVICE DISLOCATION [None]
  - CORNEAL DISORDER [None]
  - ULCERATIVE KERATITIS [None]
